FAERS Safety Report 6291582-6 (Version None)
Quarter: 2009Q3

REPORT INFORMATION
  Report Type: 
  Country: None (occurrence: None)
  Receive Date: 20090730
  Receipt Date: 20090721
  Transmission Date: 20100115
  Serious: Yes (Other)
  Sender: FDA-Public Use
  Company Number: PHHY2009BR30417

PATIENT
  Sex: Male

DRUGS (3)
  1. LEPONEX [Suspect]
     Indication: SCHIZOPHRENIA
     Dosage: 1 TABLET/DAY
     Route: 048
     Dates: start: 20090501
  2. LEPONEX [Suspect]
     Dosage: 2 TABLETS/DAY
     Route: 048
     Dates: start: 20090619
  3. ZYPREXA [Concomitant]
     Indication: SCHIZOPHRENIA
     Dosage: 3 TABLETS DAILY
     Route: 048
     Dates: start: 20090501

REACTIONS (5)
  - AGGRESSION [None]
  - AGITATION [None]
  - INCORRECT DOSE ADMINISTERED [None]
  - NERVOUSNESS [None]
  - WEIGHT INCREASED [None]
